FAERS Safety Report 17907285 (Version 1)
Quarter: 2020Q2

REPORT INFORMATION
  Report Type: Spontaneous
  Country: US (occurrence: US)
  Receive Date: 20200617
  Receipt Date: 20200617
  Transmission Date: 20200714
  Serious: Yes (Death)
  Sender: FDA-Public Use
  Company Number: None

PATIENT
  Sex: Female

DRUGS (1)
  1. KANJINTI [Suspect]
     Active Substance: TRASTUZUMAB-ANNS
     Indication: ENDOMETRIAL CANCER
     Dosage: ?          OTHER FREQUENCY:ONCE AS DIRECTED;?
     Route: 042
     Dates: start: 20200414

REACTIONS (1)
  - Death [None]
